FAERS Safety Report 12312239 (Version 2)
Quarter: 2016Q2

REPORT INFORMATION
  Report Type: Spontaneous
  Country: AR (occurrence: AR)
  Receive Date: 20160428
  Receipt Date: 20160503
  Transmission Date: 20160815
  Serious: Yes (Hospitalization)
  Sender: FDA-Public Use
  Company Number: AR-ROCHE-1748215

PATIENT
  Age: 72 Year
  Sex: Female

DRUGS (4)
  1. ATENOL [Concomitant]
     Active Substance: ATENOLOL
  2. ACTEMRA [Suspect]
     Active Substance: TOCILIZUMAB
     Indication: RHEUMATOID ARTHRITIS
     Route: 042
     Dates: start: 2015
  3. LOSARTAN. [Concomitant]
     Active Substance: LOSARTAN
  4. INDOMETACIN [Concomitant]
     Active Substance: INDOMETHACIN

REACTIONS (4)
  - Neutropenia [Recovered/Resolved]
  - Thrombocytopenia [Recovered/Resolved]
  - Mouth swelling [Recovered/Resolved]
  - Oral disorder [Not Recovered/Not Resolved]

NARRATIVE: CASE EVENT DATE: 20160421
